FAERS Safety Report 12675665 (Version 1)
Quarter: 2016Q3

REPORT INFORMATION
  Report Type: Spontaneous
  Country: US (occurrence: None)
  Receive Date: 20160822
  Receipt Date: 20160822
  Transmission Date: 20161109
  Serious: Yes (Other)
  Sender: FDA-Public Use
  Company Number: None

PATIENT
  Age: 32 Year
  Sex: Male
  Weight: 77.11 kg

DRUGS (2)
  1. DEXTROAMP-AMPHET ER 15 MG CAP, 15 MG ACTAVIS EL [Suspect]
     Active Substance: AMPHETAMINE ASPARTATE\AMPHETAMINE SULFATE\DEXTROAMPHETAMINE SACCHARATE\DEXTROAMPHETAMINE SULFATE
     Indication: ATTENTION DEFICIT/HYPERACTIVITY DISORDER
     Route: 048
     Dates: start: 20160809, end: 20160821
  2. NSAIDS [Concomitant]
     Active Substance: UNSPECIFIED INGREDIENT

REACTIONS (6)
  - Dizziness [None]
  - Fatigue [None]
  - Cognitive disorder [None]
  - Product substitution issue [None]
  - Pain [None]
  - Drug ineffective [None]

NARRATIVE: CASE EVENT DATE: 20160820
